FAERS Safety Report 21406860 (Version 2)
Quarter: 2022Q4

REPORT INFORMATION
  Report Type: Report from Study
  Country: US (occurrence: US)
  Receive Date: 20221004
  Receipt Date: 20221208
  Transmission Date: 20230113
  Serious: No
  Sender: FDA-Public Use
  Company Number: US-ABBVIE-4133338

PATIENT
  Age: 65 Year
  Sex: Male

DRUGS (1)
  1. RINVOQ [Suspect]
     Active Substance: UPADACITINIB
     Indication: Product used for unknown indication
     Route: 048

REACTIONS (1)
  - Chest discomfort [Recovered/Resolved with Sequelae]

NARRATIVE: CASE EVENT DATE: 20220901
